FAERS Safety Report 5483201-3 (Version None)
Quarter: 2007Q4

REPORT INFORMATION
  Report Type: 
  Country: None (occurrence: None)
  Receive Date: 20071009
  Receipt Date: 20071002
  Transmission Date: 20080405
  Serious: Yes (Other)
  Sender: FDA-Public Use
  Company Number: 2007SP019962

PATIENT
  Age: 30 Year
  Sex: Female

DRUGS (1)
  1. DESLORATADINE [Suspect]
     Indication: SEASONAL ALLERGY
     Dosage: 5 MG; PO
     Route: 048

REACTIONS (2)
  - NEPHROLITHIASIS [None]
  - RENAL DISORDER [None]
